FAERS Safety Report 11273119 (Version 2)
Quarter: 2015Q3

REPORT INFORMATION
  Report Type: Spontaneous
  Country: NL (occurrence: NL)
  Receive Date: 20150715
  Receipt Date: 20150804
  Transmission Date: 20151125
  Serious: Yes (Other)
  Sender: FDA-Public Use
  Company Number: NL-ACTELION-A-CH2015-120722

PATIENT
  Age: 22 Year
  Sex: Female

DRUGS (1)
  1. VELETRI [Suspect]
     Active Substance: EPOPROSTENOL
     Indication: PRODUCT USED FOR UNKNOWN INDICATION
     Dosage: UNK
     Route: 042
     Dates: start: 20150429

REACTIONS (12)
  - Dyspnoea [Recovered/Resolved]
  - Headache [Unknown]
  - Flushing [Unknown]
  - Heart rate increased [Recovered/Resolved]
  - Pain in jaw [Unknown]
  - Medication error [Unknown]
  - Device issue [Unknown]
  - Pain in extremity [Unknown]
  - Diarrhoea [Unknown]
  - Feeling hot [Unknown]
  - Erythema [Unknown]
  - Therapy cessation [Recovered/Resolved]

NARRATIVE: CASE EVENT DATE: 20150702
